FAERS Safety Report 5377419-8 (Version None)
Quarter: 2007Q3

REPORT INFORMATION
  Report Type: 
  Country: None (occurrence: None)
  Receive Date: 20070703
  Receipt Date: 20070628
  Transmission Date: 20080115
  Serious: Yes (Hospitalization)
  Sender: FDA-Public Use
  Company Number: B0476768A

PATIENT
  Sex: Female
  Weight: 64.4 kg

DRUGS (6)
  1. PLACEBO [Suspect]
     Indication: PROPHYLAXIS OF NAUSEA AND VOMITING
     Dates: start: 20070611, end: 20070613
  2. DEXAMETHASONE [Suspect]
     Indication: PROPHYLAXIS OF NAUSEA AND VOMITING
     Dosage: 8MG CYCLIC
     Route: 042
     Dates: start: 20070611, end: 20070611
  3. ZOFRAN [Suspect]
     Indication: PROPHYLAXIS OF NAUSEA AND VOMITING
     Route: 048
     Dates: start: 20070611, end: 20070613
  4. CYCLOPHOSPHAMIDE [Concomitant]
     Indication: CHEMOTHERAPY
     Route: 042
  5. FLUOROURACIL [Concomitant]
     Indication: CHEMOTHERAPY
     Route: 042
  6. DOXORUBICIN HCL [Concomitant]
     Indication: CHEMOTHERAPY

REACTIONS (5)
  - CHEST PAIN [None]
  - DYSAESTHESIA [None]
  - NEUROPATHY [None]
  - ORAL DYSAESTHESIA [None]
  - TRANSIENT ISCHAEMIC ATTACK [None]
